FAERS Safety Report 4802523-X (Version None)
Quarter: 2005Q4

REPORT INFORMATION
  Report Type: 
  Country: None (occurrence: None)
  Receive Date: 20051013
  Receipt Date: 20051003
  Transmission Date: 20060501
  Serious: Yes (Other)
  Sender: FDA-Public Use
  Company Number: 2005137621

PATIENT
  Age: 64 Year
  Sex: Male
  Weight: 88.4514 kg

DRUGS (2)
  1. BEXTRA [Suspect]
     Indication: ARTHRITIS
     Dosage: 10 MG (10 MG, 1 IN 1 D)
     Dates: start: 20031112, end: 20030101
  2. CELEBREX [Suspect]
     Indication: ILL-DEFINED DISORDER

REACTIONS (3)
  - ATRIAL FIBRILLATION [None]
  - CHONDROPATHY [None]
  - DRUG INEFFECTIVE [None]
